FAERS Safety Report 4559474-8 (Version None)
Quarter: 2005Q1

REPORT INFORMATION
  Report Type: 
  Country: None (occurrence: None)
  Receive Date: 20050119
  Receipt Date: 20050110
  Transmission Date: 20050727
  Serious: Yes (Hospitalization)
  Sender: FDA-Public Use
  Company Number: 2005009866

PATIENT
  Age: 74 Year
  Sex: Male
  Weight: 90 kg

DRUGS (1)
  1. ALDACTONE [Suspect]
     Indication: HYPERTENSION
     Dosage: 25 MG (UNK, DAILY), ORAL
     Route: 048
     Dates: start: 20040701, end: 20041101

REACTIONS (4)
  - ASTHENIA [None]
  - GYNAECOMASTIA [None]
  - MUSCLE SPASMS [None]
  - RASH ERYTHEMATOUS [None]
